FAERS Safety Report 6027628-X (Version None)
Quarter: 2009Q1

REPORT INFORMATION
  Report Type: 
  Country: None (occurrence: None)
  Receive Date: 20090105
  Receipt Date: 20080711
  Transmission Date: 20090719
  Serious: No
  Sender: FDA-Public Use
  Company Number: US-BAYER-200813047BCC

PATIENT
  Age: 84 Year
  Sex: Female
  Weight: 66 kg

DRUGS (7)
  1. ALEVE [Suspect]
     Indication: ARTHRALGIA
     Dosage: TOTAL DAILY DOSE: 220 MG  UNIT DOSE: 220 MG
     Route: 048
     Dates: start: 20080711
  2. SYNTHROID [Concomitant]
  3. DIOVAN [Concomitant]
  4. FOLGARD [Concomitant]
  5. DETROL [Concomitant]
  6. SIMVASTATIN [Concomitant]
  7. ASPIRIN [Concomitant]
     Route: 048

REACTIONS (1)
  - SOMNOLENCE [None]
